FAERS Safety Report 17553180 (Version 1)
Quarter: 2020Q1

REPORT INFORMATION
  Report Type: Report from Study
  Country: FR (occurrence: FR)
  Receive Date: 20200317
  Receipt Date: 20200317
  Transmission Date: 20200409
  Serious: Yes (Hospitalization, Other)
  Sender: FDA-Public Use
  Company Number: PHHY2019FR206687

PATIENT
  Age: 77 Year
  Sex: Female
  Weight: 61 kg

DRUGS (1)
  1. ADOPORT [Suspect]
     Active Substance: TACROLIMUS
     Indication: RENAL TRANSPLANT
     Dosage: 6 MG, UNK
     Route: 048
     Dates: start: 20190122

REACTIONS (7)
  - Neutropenia [Recovered/Resolved]
  - Pyelonephritis [Recovered/Resolved]
  - Kidney transplant rejection [Recovered/Resolved with Sequelae]
  - Urinary tract infection [Unknown]
  - Pneumonia [Recovered/Resolved]
  - Graft infection [Recovered/Resolved]
  - Anaemia [Recovered/Resolved]

NARRATIVE: CASE EVENT DATE: 20190122
